FAERS Safety Report 11402270 (Version 1)
Quarter: 2015Q3

REPORT INFORMATION
  Report Type: Spontaneous
  Country: US (occurrence: None)
  Receive Date: 20150819
  Receipt Date: 20150819
  Transmission Date: 20151125
  Serious: Yes (Hospitalization)
  Sender: FDA-Public Use
  Company Number: None

PATIENT
  Age: 60 Year
  Sex: Male
  Weight: 69.6 kg

DRUGS (1)
  1. DIVALPROEX [Suspect]
     Active Substance: DIVALPROEX SODIUM
     Route: 048
     Dates: end: 20150723

REACTIONS (3)
  - Lethargy [None]
  - Sedation [None]
  - Hyperammonaemia [None]

NARRATIVE: CASE EVENT DATE: 20150722
